FAERS Safety Report 6428636-7 (Version None)
Quarter: 2009Q4

REPORT INFORMATION
  Report Type: 
  Country: None (occurrence: None)
  Receive Date: 20091104
  Receipt Date: 20091104
  Transmission Date: 20100525
  Serious: Yes (Hospitalization)
  Sender: FDA-Public Use
  Company Number: None

PATIENT
  Age: 85 Year
  Sex: Male

DRUGS (2)
  1. WARFARIN SODIUM [Suspect]
     Indication: ATRIAL FIBRILLATION
  2. WARFARIN SODIUM [Suspect]
     Indication: DEEP VEIN THROMBOSIS

REACTIONS (1)
  - TRANSIENT ISCHAEMIC ATTACK [None]
